FAERS Safety Report 11777144 (Version 3)
Quarter: 2018Q1

REPORT INFORMATION
  Report Type: Spontaneous
  Country: US (occurrence: US)
  Receive Date: 20151125
  Receipt Date: 20180207
  Transmission Date: 20180508
  Serious: No
  Sender: FDA-Public Use
  Company Number: US-PFIZER INC-2015389653

PATIENT
  Age: 60 Year
  Sex: Female
  Weight: 72 kg

DRUGS (10)
  1. TRAMADOL. [Concomitant]
     Active Substance: TRAMADOL
     Indication: PAIN
     Dosage: 50 MG, 4X/DAY, EVERY 6 HOURS AS NEEDED
     Route: 048
     Dates: start: 2013
  2. MAG OXIDE [Concomitant]
     Active Substance: MAGNESIUM OXIDE
     Indication: GASTROOESOPHAGEAL REFLUX DISEASE
     Dosage: 400 MG, 1X/DAY
     Route: 048
     Dates: start: 2012
  3. NOVOLOG [Concomitant]
     Active Substance: INSULIN ASPART
     Indication: DIABETES MELLITUS
     Dosage: BASED ON SLIDING SCALE
  4. OMEGA 3 FISH OIL [Concomitant]
     Active Substance: FISH OIL\OMEGA-3 FATTY ACIDS
     Indication: CARDIAC DISORDER
     Dosage: 1 G, 2X/DAY
     Route: 048
     Dates: start: 2014
  5. LYRICA [Suspect]
     Active Substance: PREGABALIN
     Indication: DIABETIC NEUROPATHY
     Dosage: 100 MG, 2X/DAY
     Route: 048
  6. LISINOPRIL. [Concomitant]
     Active Substance: LISINOPRIL
     Indication: HYPERTENSION
     Dosage: 10 MG, 1X/DAY
     Dates: start: 2013
  7. METFORMIN [Concomitant]
     Active Substance: METFORMIN HYDROCHLORIDE
     Indication: DIABETES MELLITUS
     Dosage: 1000 MG, 2X/DAY, IN THE MORNING AND IN THE EVENING
  8. GLIPIZIDE. [Concomitant]
     Active Substance: GLIPIZIDE
     Dosage: 10 MG, 2X/DAY
     Route: 048
  9. METOPROLOL. [Concomitant]
     Active Substance: METOPROLOL
     Indication: CARDIAC DISORDER
     Dosage: 25 MG, 2X/DAY
     Route: 048
  10. LEVEMIR [Concomitant]
     Active Substance: INSULIN DETEMIR
     Indication: DIABETES MELLITUS
     Dosage: 40 IU, 2X/DAY

REACTIONS (1)
  - Gait disturbance [Unknown]

NARRATIVE: CASE EVENT DATE: 20151112
